FAERS Safety Report 13597418 (Version 1)
Quarter: 2017Q2

REPORT INFORMATION
  Report Type: Spontaneous
  Country: US (occurrence: US)
  Receive Date: 20170531
  Receipt Date: 20170531
  Transmission Date: 20170830
  Serious: No
  Sender: FDA-Public Use
  Company Number: US-PFIZER INC-2017238282

PATIENT
  Age: 63 Year
  Sex: Female
  Weight: 110 kg

DRUGS (8)
  1. DEXAMETHASONE. [Concomitant]
     Active Substance: DEXAMETHASONE
     Indication: PROPHYLAXIS OF NAUSEA AND VOMITING
     Dosage: 4MG IV ONE TIME ONLY
     Route: 042
     Dates: start: 20170518, end: 20170518
  2. ROPIVACAINE [Concomitant]
     Active Substance: ROPIVACAINE
     Indication: ANAESTHESIA
     Dosage: 0.375 PERCENT 30ML IV ONE TIME ONLY
     Route: 042
     Dates: start: 20170518, end: 20170518
  3. BUPIVACAINE HCL [Suspect]
     Active Substance: BUPIVACAINE HYDROCHLORIDE
     Indication: SPINAL ANAESTHESIA
     Dosage: 1.6ML ONE TIME
     Route: 037
     Dates: start: 20170518
  4. EPHEDRINE. [Concomitant]
     Active Substance: EPHEDRINE
     Indication: HYPOTENSION
     Dosage: 10MG IV DOSES GIVEN TWICE
     Route: 042
     Dates: start: 20170518, end: 20170518
  5. CEFAZOLIN [Concomitant]
     Active Substance: CEFAZOLIN
     Dosage: 2GM IV EVERY 8 HOURS FOR THREE DOSES ONLY
     Route: 042
     Dates: start: 20170518
  6. DEXMEDETOMIDINE. [Concomitant]
     Active Substance: DEXMEDETOMIDINE
     Indication: ANAESTHESIA
     Dosage: 110MCG INFUSION ONE TIME ONLY
     Dates: start: 20170518, end: 20170518
  7. PHENYLEPHRINE [Concomitant]
     Active Substance: PHENYLEPHRINE\PHENYLEPHRINE HYDROCHLORIDE
     Indication: BLOOD PRESSURE ABNORMAL
     Dosage: 12 DOSES OF 100MCG IV OR 200MCG IV IN A COURSE OF 90 MINUTES
     Route: 042
     Dates: start: 20170518, end: 20170518
  8. PROPOFOL. [Concomitant]
     Active Substance: PROPOFOL
     Indication: ANAESTHESIA
     Dosage: 200MG IV ONE TIME ONLY DOSE
     Route: 042
     Dates: start: 20170518, end: 20170518

REACTIONS (1)
  - Drug ineffective [Unknown]

NARRATIVE: CASE EVENT DATE: 20170518
